FAERS Safety Report 18865192 (Version 1)
Quarter: 2021Q1

REPORT INFORMATION
  Report Type: Spontaneous
  Country: AU (occurrence: AU)
  Receive Date: 20210208
  Receipt Date: 20210208
  Transmission Date: 20210420
  Serious: Yes (Other)
  Sender: FDA-Public Use
  Company Number: AU-NOVOPROD-784815

PATIENT
  Sex: Male
  Weight: 160 kg

DRUGS (1)
  1. NOVOSEVEN [Suspect]
     Active Substance: COAGULATION FACTOR VIIA RECOMBINANT HUMAN
     Indication: ACQUIRED HAEMOPHILIA
     Dosage: 14MG DOSE, 2 HOURLY THEN 3 HOURLY ? USED OVER 300MG
     Route: 065

REACTIONS (1)
  - Procedural haemorrhage [Not Recovered/Not Resolved]
